FAERS Safety Report 5413360-X (Version None)
Quarter: 2007Q3

REPORT INFORMATION
  Report Type: 
  Country: None (occurrence: None)
  Receive Date: 20070810
  Receipt Date: 20070723
  Transmission Date: 20080115
  Serious: Yes (Other)
  Sender: FDA-Public Use
  Company Number: 2007RR-08883

PATIENT
  Age: 31 Year
  Sex: Male

DRUGS (2)
  1. DOXYCYCLINE [Suspect]
     Indication: MALARIA PROPHYLAXIS
  2. MICONAZOLE (MICONAZOLE) CREAM [Concomitant]

REACTIONS (4)
  - GRANULOMA SKIN [None]
  - PHOTOSENSITIVITY REACTION [None]
  - SKIN LESION [None]
  - SOLAR ELASTOSIS [None]
